FAERS Safety Report 23228857 (Version 1)
Quarter: 2023Q4

REPORT INFORMATION
  Report Type: Spontaneous
  Country: US (occurrence: None)
  Receive Date: 20231126
  Receipt Date: 20231126
  Transmission Date: 20240110
  Serious: No
  Sender: FDA-Public Use
  Company Number: US-ROCHE-3319878

PATIENT
  Age: 37 Year
  Sex: Female
  Weight: 55.9 kg

DRUGS (2)
  1. HERCEPTIN [Suspect]
     Active Substance: TRASTUZUMAB
     Indication: Triple positive breast cancer
     Dosage: SHE RECEIVED TREATMENT ON THE FOLLOWING DATES: 15/APR2022, 19/MAY/2022, 09/JUN/2022, 28/JUN/2022, 04
     Route: 042
     Dates: start: 20220415, end: 20230209
  2. LUPRON [Concomitant]
     Active Substance: LEUPROLIDE ACETATE
     Route: 030
     Dates: start: 20230126, end: 20230126

REACTIONS (1)
  - Maternal exposure during pregnancy [Unknown]
